FAERS Safety Report 8184567-6 (Version None)
Quarter: 2012Q1

REPORT INFORMATION
  Report Type: 
  Country: None (occurrence: None)
  Receive Date: 20120305
  Receipt Date: 20120228
  Transmission Date: 20120608
  Serious: Yes (Death)
  Sender: FDA-Public Use
  Company Number: ZA-MERCK-1202ZAF00037

PATIENT
  Age: 63 Year
  Sex: Male

DRUGS (1)
  1. CANCIDAS [Suspect]
     Indication: PROPHYLAXIS
     Route: 065

REACTIONS (4)
  - OFF LABEL USE [None]
  - PLEURAL EFFUSION [None]
  - DEATH [None]
  - PERICARDIAL HAEMORRHAGE [None]
